FAERS Safety Report 13707156 (Version 1)
Quarter: 2017Q2

REPORT INFORMATION
  Report Type: Other
  Country: MY (occurrence: MY)
  Receive Date: 20170630
  Receipt Date: 20170630
  Transmission Date: 20170830
  Serious: No
  Sender: FDA-Public Use
  Company Number: MY-LEADING PHARMA-2022787

PATIENT
  Age: 56 Year
  Sex: Male

DRUGS (1)
  1. FUROSEMIDE TABLETS , 20 MG, 40 MG AND 80 MG [Suspect]
     Active Substance: FUROSEMIDE
     Indication: CARDIAC FAILURE

REACTIONS (1)
  - Polyuria [Unknown]
